FAERS Safety Report 7456325-9 (Version None)
Quarter: 2011Q2

REPORT INFORMATION
  Report Type: 
  Country: None (occurrence: None)
  Receive Date: 20110503
  Receipt Date: 20110405
  Transmission Date: 20111010
  Serious: Yes (Life-Threatening, Hospitalization)
  Sender: FDA-Public Use
  Company Number: US-BAYER-201028569NA

PATIENT
  Age: 16 Year
  Sex: Female
  Weight: 66 kg

DRUGS (2)
  1. YAZ [Suspect]
     Indication: ACNE
     Route: 048
     Dates: start: 20070101
  2. MINOCYCLINE [Concomitant]

REACTIONS (3)
  - PELVIC VENOUS THROMBOSIS [None]
  - PULMONARY EMBOLISM [None]
  - DEEP VEIN THROMBOSIS [None]
